FAERS Safety Report 8441838-3 (Version None)
Quarter: 2012Q2

REPORT INFORMATION
  Report Type: 
  Country: None (occurrence: None)
  Receive Date: 20120615
  Receipt Date: 20110906
  Transmission Date: 20120825
  Serious: No
  Sender: FDA-Public Use
  Company Number: US-NOVEN-11US003161

PATIENT
  Sex: Female
  Weight: 22.676 kg

DRUGS (3)
  1. DAYTRANA [Suspect]
     Indication: PRODUCT USED FOR UNKNOWN INDICATION
     Dosage: 10 MG, QD
     Route: 062
     Dates: start: 20110601
  2. HYDROCORTISONE [Concomitant]
     Indication: PRURITUS
  3. HYDROCORTISONE [Concomitant]
     Indication: ERYTHEMA
     Dosage: UNK
     Route: 062

REACTIONS (5)
  - DRUG ADMINISTRATION ERROR [None]
  - PRODUCT QUALITY ISSUE [None]
  - APPLICATION SITE ERYTHEMA [None]
  - APPLICATION SITE PRURITUS [None]
  - DRUG ADMINISTERED AT INAPPROPRIATE SITE [None]
